FAERS Safety Report 17130517 (Version 1)
Quarter: 2019Q4

REPORT INFORMATION
  Report Type: Spontaneous
  Country: IT (occurrence: IT)
  Receive Date: 20191209
  Receipt Date: 20191209
  Transmission Date: 20200122
  Serious: Yes (Hospitalization)
  Sender: FDA-Public Use
  Company Number: IT-MYLANLABS-2019M1119906

PATIENT
  Age: 66 Year
  Sex: Male
  Weight: 85 kg

DRUGS (3)
  1. DAPTOMYCIN. [Concomitant]
     Active Substance: DAPTOMYCIN
     Dosage: 700 MILLIGRAM
     Route: 065
     Dates: start: 20190704, end: 20190714
  2. VANCOMYCIN [Suspect]
     Active Substance: VANCOMYCIN
     Indication: PRODUCT USED FOR UNKNOWN INDICATION
     Dosage: 1 GRAM, QD
     Route: 042
     Dates: start: 20190618, end: 20190704
  3. DOXYCYCLINE. [Concomitant]
     Active Substance: DOXYCYCLINE
     Dosage: 200 MILLIGRAM
     Route: 048
     Dates: start: 20190618, end: 20190714

REACTIONS (2)
  - Renal failure [Unknown]
  - Rash [Unknown]

NARRATIVE: CASE EVENT DATE: 20190713
